FAERS Safety Report 9053949 (Version 1)
Quarter: 2013Q1

REPORT INFORMATION
  Report Type: Report from Study
  Country: US (occurrence: US)
  Receive Date: 20130208
  Receipt Date: 20130208
  Transmission Date: 20140127
  Serious: Yes (Hospitalization)
  Sender: FDA-Public Use
  Company Number: US-AMGEN-USACT2012019595

PATIENT
  Age: 55 Year
  Sex: Male

DRUGS (11)
  1. DARBEPOETIN ALFA [Suspect]
     Indication: CARDIAC FAILURE
     Dosage: UNK
     Route: 058
     Dates: start: 20080825, end: 20120312
  2. LIPITOR [Concomitant]
     Dosage: 80 MG, QD
  3. DIOVAN [Concomitant]
     Dosage: 320 MG, QD
  4. CARVEDILOL [Concomitant]
     Dosage: 25 MG, BID
  5. DIGOXIN [Concomitant]
     Dosage: 0.25 MG, QD
  6. CARDURA [Concomitant]
     Dosage: 4 MG, QD
  7. LISINOPRIL [Concomitant]
     Dosage: 40 MG, QD
  8. HYDRALAZINE [Concomitant]
     Dosage: 25 MG, TID
  9. NOVOLIN [Concomitant]
  10. AMLODIPINE [Concomitant]
     Dosage: 10 MG, QD
  11. LASIX [Concomitant]
     Dosage: 40 MG, QD

REACTIONS (1)
  - Renal failure chronic [Recovering/Resolving]
